FAERS Safety Report 7784546-4 (Version None)
Quarter: 2011Q3

REPORT INFORMATION
  Report Type: 
  Country: None (occurrence: None)
  Receive Date: 20110928
  Receipt Date: 20110914
  Transmission Date: 20111222
  Serious: No
  Sender: FDA-Public Use
  Company Number: US-B.I. PHARMACEUTICALS,INC./RIDGEFIELD-2011-BP-19487BP

PATIENT
  Age: 76 Year
  Sex: Male
  Weight: 101.3 kg

DRUGS (5)
  1. ALBUTEROL INHALER [Concomitant]
     Dosage: 30 MG
  2. ARICEPT [Concomitant]
     Dosage: 10 MG
  3. PRADAXA [Suspect]
     Indication: ATRIAL FIBRILLATION
     Dosage: 300 MG
     Route: 048
  4. DIGOXIN [Concomitant]
     Dosage: 0.125 MG
  5. GLIPIZIDE [Concomitant]
     Dosage: 10 MG

REACTIONS (1)
  - HEPATIC ENZYME INCREASED [None]
